FAERS Safety Report 10160500 (Version 3)
Quarter: 2014Q2

REPORT INFORMATION
  Report Type: Spontaneous
  Country: US (occurrence: US)
  Receive Date: 20140508
  Receipt Date: 20140619
  Transmission Date: 20141212
  Serious: Yes (Death)
  Sender: FDA-Public Use
  Company Number: US-PFIZER INC-2014126094

PATIENT
  Age: 41 Year
  Sex: Male

DRUGS (2)
  1. XALKORI [Suspect]
     Indication: LUNG NEOPLASM MALIGNANT
     Dosage: 250 MG, 2X/DAY (BID)
     Route: 048
     Dates: start: 20140407
  2. LEVAQUIN [Concomitant]
     Dosage: 500 MG, DAILY
     Route: 048

REACTIONS (1)
  - Death [Fatal]
